FAERS Safety Report 15903966 (Version 2)
Quarter: 2019Q2

REPORT INFORMATION
  Report Type: Spontaneous
  Country: JP (occurrence: JP)
  Receive Date: 20190204
  Receipt Date: 20190604
  Transmission Date: 20190711
  Serious: Yes (Other)
  Sender: FDA-Public Use
  Company Number: JP-SUN PHARMACEUTICAL INDUSTRIES LTD-2019RR-197747

PATIENT
  Age: 70 Year
  Sex: Female

DRUGS (3)
  1. CAPECITABINE. [Suspect]
     Active Substance: CAPECITABINE
     Indication: METASTASES TO LUNG
     Dosage: 2000 MILLIGRAM/SQ. METER, DAILY, ON DAYS 1-15, XELOX REGIMEN
     Route: 048
     Dates: start: 201101
  2. OXALIPLATIN. [Suspect]
     Active Substance: OXALIPLATIN
     Indication: METASTASES TO LUNG
     Dosage: 130 MILLIGRAM/SQ. METER, ON DAY 1, XELOX REGIMEN
     Route: 042
     Dates: start: 201101
  3. BEVACIZUMAB. [Suspect]
     Active Substance: BEVACIZUMAB
     Indication: METASTASES TO LUNG
     Dosage: 5 MILLIGRAM/KILOGRAM, ON DAY 1
     Route: 042
     Dates: start: 201101

REACTIONS (2)
  - Neuropathy peripheral [Unknown]
  - Palmar-plantar erythrodysaesthesia syndrome [Unknown]
